FAERS Safety Report 16304591 (Version 1)
Quarter: 2019Q2

REPORT INFORMATION
  Report Type: Spontaneous
  Country: US (occurrence: US)
  Receive Date: 20190513
  Receipt Date: 20190513
  Transmission Date: 20190711
  Serious: No
  Sender: FDA-Public Use
  Company Number: US-BAYER-2019-091426

PATIENT
  Age: 64 Year
  Sex: Female
  Weight: 137 kg

DRUGS (1)
  1. MIRALAX [Suspect]
     Active Substance: POLYETHYLENE GLYCOL 3350
     Indication: IRRITABLE BOWEL SYNDROME
     Dosage: UNK
     Route: 048
     Dates: start: 2018

REACTIONS (7)
  - Off label use [Unknown]
  - Product use in unapproved indication [Unknown]
  - Weight decreased [Unknown]
  - Adverse reaction [Unknown]
  - Weight increased [Unknown]
  - Flatulence [Unknown]
  - Product use issue [Unknown]

NARRATIVE: CASE EVENT DATE: 2018
